FAERS Safety Report 22334312 (Version 2)
Quarter: 2023Q2

REPORT INFORMATION
  Report Type: Spontaneous
  Country: JP (occurrence: None)
  Receive Date: 20230517
  Receipt Date: 20230525
  Transmission Date: 20230721
  Serious: Yes (Hospitalization)
  Sender: FDA-Public Use
  Company Number: 2023A052950

PATIENT
  Age: 55 Year
  Sex: Female
  Weight: 40 kg

DRUGS (1)
  1. EVUSHELD [Suspect]
     Active Substance: CILGAVIMAB\TIXAGEVIMAB
     Indication: COVID-19 prophylaxis
     Dosage: 600.0MG UNKNOWN
     Route: 030
     Dates: start: 20221112, end: 20221112

REACTIONS (2)
  - Epidermolysis bullosa [Recovered/Resolved]
  - Cytomegalovirus viraemia [Unknown]

NARRATIVE: CASE EVENT DATE: 20221210
